FAERS Safety Report 9265345 (Version 1)
Quarter: 2013Q2

REPORT INFORMATION
  Report Type: Report from Study
  Country: US (occurrence: US)
  Receive Date: 20130430
  Receipt Date: 20130430
  Transmission Date: 20140414
  Serious: Yes (Other)
  Sender: FDA-Public Use
  Company Number: US-RB-022166-11

PATIENT
  Age: 29 Year
  Sex: Male

DRUGS (5)
  1. SUBOXONE FILM [Suspect]
     Indication: DRUG DEPENDENCE
     Dosage: SUBOXONE FILM
     Route: 065
     Dates: start: 2010, end: 2011
  2. SUBOXONE FILM [Suspect]
     Dosage: SUBOXONE FILM
     Route: 065
     Dates: start: 2011, end: 2011
  3. SUBOXONE FILM [Suspect]
     Dosage: SUBOXONE FILM; HALF THE DOSE IN THE MORNING, HALF THE DOSE AT DINNER
     Route: 065
     Dates: start: 2011
  4. TOPAMAX [Concomitant]
     Indication: MIGRAINE
     Dosage: DOSING DETAILS UNKNOWN
     Route: 065
  5. IMITREX [Concomitant]
     Indication: MIGRAINE
     Dosage: DOSING DETAILS UNKNOWN; TAKEN AS NEEDED
     Route: 065

REACTIONS (4)
  - Drug withdrawal syndrome [Recovered/Resolved]
  - Tremor [Recovered/Resolved]
  - Pneumonia [Recovered/Resolved]
  - Asthma [Recovered/Resolved]
